FAERS Safety Report 6234250-9 (Version None)
Quarter: 2009Q2

REPORT INFORMATION
  Report Type: 
  Country: None (occurrence: None)
  Receive Date: 20090612
  Receipt Date: 20090605
  Transmission Date: 20091009
  Serious: Yes (Death, Hospitalization)
  Sender: FDA-Public Use
  Company Number: URSO-2008-172

PATIENT
  Age: 54 Year
  Sex: Female

DRUGS (15)
  1. URSODIOL [Suspect]
     Indication: ASCITES
     Dosage: 600 MG/DAY ORAL
     Route: 048
     Dates: start: 20061228, end: 20090203
  2. MEDWAY (HUMAN SERUM ALBUMIN - GENETICAL RECOMBINATION) [Suspect]
     Indication: HEPATIC CIRRHOSIS
     Dosage: 50 MG/DAY, DR
     Dates: start: 20081210, end: 20081210
  3. LANSOPRAZOLE [Concomitant]
  4. PREDNISOLONE [Concomitant]
  5. BENET (SODIUM RISEDRONATE HYDRATE) [Concomitant]
  6. ALOSENN (SENNA LEAF-SENNA POD) [Concomitant]
  7. NELBON (NITRAZEPAM) [Concomitant]
  8. MAGNESIUM OXIDE [Concomitant]
  9. RIZE (CLOTIAZEPAM) [Concomitant]
  10. PROMAC (POLAPREZINC) [Concomitant]
  11. LASIX [Concomitant]
  12. ALDACTONE [Concomitant]
  13. LIVACT (ISOLEUCINE-LEUCINE-VALINE) [Concomitant]
  14. SHAKUYAKU-KANZO-TO [Concomitant]
  15. DEPAS (ETIAZOLAM) [Concomitant]

REACTIONS (9)
  - AUTOIMMUNE HEPATITIS [None]
  - CAROTID ARTERY ANEURYSM [None]
  - CEREBRAL INFARCTION [None]
  - DISEASE RECURRENCE [None]
  - EMBOLIC STROKE [None]
  - HEPATIC NECROSIS [None]
  - LUNG DISORDER [None]
  - LYMPHOCYTIC INFILTRATION [None]
  - MUSCULAR WEAKNESS [None]
